FAERS Safety Report 5736280-X (Version None)
Quarter: 2008Q2

REPORT INFORMATION
  Report Type: 
  Country: None (occurrence: None)
  Receive Date: 20080508
  Receipt Date: 20080422
  Transmission Date: 20081010
  Serious: Yes (Hospitalization)
  Sender: FDA-Public Use
  Company Number: S08-FRA-01681-01

PATIENT
  Age: 66 Year
  Sex: Male

DRUGS (5)
  1. ESCITALOPRAM [Suspect]
     Indication: DEPRESSION
     Dosage: 20 MG QD PO
     Route: 048
     Dates: start: 20080213, end: 20080227
  2. ESCITALOPRAM [Suspect]
     Indication: DEPRESSION
     Dosage: 5 MG QD PO
     Route: 048
     Dates: start: 20080205, end: 20080205
  3. VALIUM [Concomitant]
  4. ATHYMIL (MIANSERIN HYDROCHLORIDE) [Concomitant]
  5. RAMIPRIL [Concomitant]

REACTIONS (3)
  - GENERAL PHYSICAL HEALTH DETERIORATION [None]
  - HYPERTONIA [None]
  - PARKINSON'S DISEASE [None]
